FAERS Safety Report 9261129 (Version 2)
Quarter: 2014Q1

REPORT INFORMATION
  Report Type: Spontaneous
  Country: US (occurrence: US)
  Receive Date: 20130429
  Receipt Date: 20140310
  Transmission Date: 20141002
  Serious: No
  Sender: FDA-Public Use
  Company Number: US-AMGEN-USASP2013008628

PATIENT
  Age: 61 Year
  Sex: Female

DRUGS (5)
  1. SENSIPAR [Suspect]
     Indication: HYPERPARATHYROIDISM SECONDARY
     Dosage: 30 MG, QD
  2. SENSIPAR [Suspect]
     Indication: RENAL FAILURE CHRONIC
  3. SENSIPAR [Suspect]
  4. RENVELA [Concomitant]
  5. BABY ASPIRIN [Concomitant]

REACTIONS (2)
  - Vomiting [Not Recovered/Not Resolved]
  - Laboratory test abnormal [Not Recovered/Not Resolved]
